FAERS Safety Report 4989879-2 (Version None)
Quarter: 2006Q2

REPORT INFORMATION
  Report Type: 
  Country: None (occurrence: None)
  Receive Date: 20060428
  Receipt Date: 20060425
  Transmission Date: 20061013
  Serious: Yes (Hospitalization)
  Sender: FDA-Public Use
  Company Number: HQWYE481223MAR06

PATIENT
  Age: 59 Year
  Sex: Female

DRUGS (1)
  1. CEFIXIME [Suspect]
     Indication: URINARY TRACT INFECTION
     Dosage: 400 MG DAILY ORAL
     Route: 048
     Dates: start: 20050503, end: 20050509

REACTIONS (2)
  - ANGIONEUROTIC OEDEMA [None]
  - CLOSTRIDIUM COLITIS [None]
